FAERS Safety Report 21727388 (Version 1)
Quarter: 2022Q4

REPORT INFORMATION
  Report Type: Spontaneous
  Country: US (occurrence: None)
  Receive Date: 20221213
  Receipt Date: 20221213
  Transmission Date: 20230113
  Serious: Yes (Death)
  Sender: FDA-Public Use
  Company Number: None

PATIENT
  Sex: Male

DRUGS (1)
  1. HUMATROPE [Suspect]
     Active Substance: SOMATROPIN
     Indication: Hypopituitarism
     Dosage: INJECT 0.2 MG UNDER THE SKIN (SUBCUTANEOUS INJECTION) EVERY DAY. DISCARD CARTRIDGE 28 DAYS AFTER ?IN
     Dates: start: 20220915

REACTIONS (1)
  - Death [None]
